FAERS Safety Report 4354692-6 (Version None)
Quarter: 2004Q2

REPORT INFORMATION
  Report Type: 
  Country: None (occurrence: None)
  Receive Date: 20040503
  Receipt Date: 20040420
  Transmission Date: 20050107
  Serious: Yes (Other)
  Sender: FDA-Public Use
  Company Number: HQWYE579323APR04

PATIENT
  Age: 64 Year
  Sex: Male
  Weight: 81.72 kg

DRUGS (9)
  1. ALAVERT [Suspect]
     Indication: HYPERSENSITIVITY
     Dosage: 1 TABLET 1X PER 1 DAY, ORAL
     Route: 048
     Dates: start: 20040419, end: 20040419
  2. VICODIN [Concomitant]
  3. TYLENOL ARTHRITIS PAIN (ACETAMINOPHEN) [Concomitant]
  4. LANTUS [Concomitant]
  5. HUMALOG [Concomitant]
  6. SYNTHROID [Concomitant]
  7. LIPITOR [Concomitant]
  8. CAPTOPRIL [Concomitant]
  9. DILTIAZEM [Concomitant]

REACTIONS (2)
  - BLOOD PRESSURE INCREASED [None]
  - EPISTAXIS [None]
